FAERS Safety Report 10169865 (Version 3)
Quarter: 2014Q2

REPORT INFORMATION
  Report Type: Spontaneous
  Country: NO (occurrence: NO)
  Receive Date: 20140513
  Receipt Date: 20140606
  Transmission Date: 20141212
  Serious: Yes (Death, Hospitalization)
  Sender: FDA-Public Use
  Company Number: NO-BAYER-2014-065997

PATIENT
  Age: 54 Year
  Sex: Female

DRUGS (4)
  1. STIVARGA [Suspect]
     Indication: COLORECTAL CANCER
     Dosage: UNK
     Route: 048
     Dates: start: 20140310, end: 20140329
  2. ZANIDIP [Concomitant]
  3. COAPROVEL [Concomitant]
  4. LEVAXIN [Concomitant]

REACTIONS (10)
  - Infarction [Fatal]
  - Pyrexia [None]
  - Pain [None]
  - Nasopharyngitis [None]
  - Rash generalised [Recovering/Resolving]
  - Lung infiltration [None]
  - Thrombocytopenia [None]
  - Cold sweat [None]
  - Hypotension [None]
  - Nausea [None]
